FAERS Safety Report 4907413-X (Version None)
Quarter: 2006Q1

REPORT INFORMATION
  Report Type: 
  Country: None (occurrence: None)
  Receive Date: 20060208
  Receipt Date: 20060208
  Transmission Date: 20060701
  Serious: Yes (Hospitalization)
  Sender: FDA-Public Use
  Company Number: None

PATIENT
  Age: 77 Year
  Sex: Male

DRUGS (6)
  1. OLANZAPINE [Suspect]
     Indication: SCHIZOPHRENIA
     Dosage: 20 MG QD
     Dates: start: 20051026
  2. HYDRALAZINE [Suspect]
     Indication: HYPERTENSION
     Dosage: 10 MG TID
     Dates: start: 20051026
  3. GALANTAMINE [Concomitant]
  4. ASPIRIN [Concomitant]
  5. LORATADINE [Concomitant]
  6. SERTRALINE [Concomitant]

REACTIONS (2)
  - ELECTROCARDIOGRAM QT PROLONGED [None]
  - HYPOTENSION [None]
